FAERS Safety Report 8239457-7 (Version None)
Quarter: 2012Q1

REPORT INFORMATION
  Report Type: 
  Country: None (occurrence: None)
  Receive Date: 20120328
  Receipt Date: 20120321
  Transmission Date: 20120608
  Serious: Yes (Death)
  Sender: FDA-Public Use
  Company Number: US-CELGENEUS-163-21880-12020936

PATIENT
  Sex: Female

DRUGS (6)
  1. REVLIMID [Suspect]
     Indication: MULTIPLE MYELOMA
     Dosage: 25 MILLIGRAM
     Route: 048
     Dates: start: 20110726
  2. DILTIAZEM HCL [Concomitant]
     Dosage: 125 MILLIGRAM
     Route: 065
  3. AMIODARONE HCL [Concomitant]
     Dosage: 200 MILLIGRAM
     Route: 065
  4. REVLIMID [Suspect]
     Dosage: 10 MILLIGRAM
     Route: 048
     Dates: start: 20111013, end: 20111025
  5. PRADAXA [Concomitant]
     Dosage: 75 MILLIGRAM
     Route: 065
  6. DIGOXIN [Concomitant]
     Dosage: .125 MILLIGRAM
     Route: 065

REACTIONS (1)
  - MULTIPLE MYELOMA [None]
